FAERS Safety Report 17714754 (Version 1)
Quarter: 2020Q2

REPORT INFORMATION
  Report Type: Spontaneous
  Country: JP (occurrence: JP)
  Receive Date: 20200427
  Receipt Date: 20200427
  Transmission Date: 20200714
  Serious: Yes (Hospitalization, Other)
  Sender: FDA-Public Use
  Company Number: JP-VALIDUS PHARMACEUTICALS LLC-JP-2020VAL000347

PATIENT

DRUGS (5)
  1. HERBESSER [Suspect]
     Active Substance: DILTIAZEM HYDROCHLORIDE
     Indication: HYPERTENSION
     Dosage: 200 MG, QD
     Route: 048
  2. CARVEDILOL. [Suspect]
     Active Substance: CARVEDILOL
     Indication: ATRIAL FIBRILLATION
  3. CARVEDILOL. [Suspect]
     Active Substance: CARVEDILOL
     Indication: HYPERTENSION
     Dosage: 1.25 MG, QD
     Route: 048
  4. FUROSEMIDE. [Suspect]
     Active Substance: FUROSEMIDE
     Indication: HYPERTENSION
     Dosage: 20 MG, QD
     Route: 048
  5. DABIGATRAN ETEXILATE MESILATE [Suspect]
     Active Substance: DABIGATRAN ETEXILATE MESYLATE
     Indication: ANTICOAGULANT THERAPY
     Dosage: 200 MG, QD
     Route: 048

REACTIONS (3)
  - Vascular parkinsonism [Unknown]
  - Organising pneumonia [Recovering/Resolving]
  - Arterial occlusive disease [Recovering/Resolving]

NARRATIVE: CASE EVENT DATE: 201807
